FAERS Safety Report 16368890 (Version 1)
Quarter: 2019Q2

REPORT INFORMATION
  Report Type: Spontaneous
  Country: US (occurrence: US)
  Receive Date: 20190529
  Receipt Date: 20190529
  Transmission Date: 20190711
  Serious: Yes (Other)
  Sender: FDA-Public Use
  Company Number: US-ELI_LILLY_AND_COMPANY-US201905010542

PATIENT
  Sex: Female

DRUGS (2)
  1. DULOXETINE HYDROCHLORIDE. [Suspect]
     Active Substance: DULOXETINE HYDROCHLORIDE
     Indication: FIBROMYALGIA
     Dosage: UNK UNK, UNKNOWN
     Route: 065
     Dates: start: 201611
  2. DULOXETINE HYDROCHLORIDE. [Suspect]
     Active Substance: DULOXETINE HYDROCHLORIDE
     Dosage: 20 MG, UNKNOWN
     Route: 065

REACTIONS (9)
  - Neurogenic bladder [Unknown]
  - Mobility decreased [Unknown]
  - Weight increased [Unknown]
  - Withdrawal syndrome [Unknown]
  - Wrong technique in product usage process [Unknown]
  - Sleep disorder due to general medical condition, insomnia type [Unknown]
  - Tremor [Unknown]
  - Restlessness [Unknown]
  - Food craving [Unknown]
